FAERS Safety Report 10156716 (Version 2)
Quarter: 2014Q2

REPORT INFORMATION
  Report Type: Report from Study
  Country: CA (occurrence: CA)
  Receive Date: 20140507
  Receipt Date: 20140507
  Transmission Date: 20141212
  Serious: Yes (Other)
  Sender: FDA-Public Use
  Company Number: CA-JNJFOC-20140314866

PATIENT
  Sex: Female
  Weight: 168 kg

DRUGS (3)
  1. REMICADE [Suspect]
     Indication: CROHN^S DISEASE
     Route: 042
     Dates: start: 20140321
  2. REMICADE [Suspect]
     Indication: CROHN^S DISEASE
     Route: 042
     Dates: start: 20090101
  3. IMURAN [Concomitant]
     Route: 065

REACTIONS (3)
  - Malignant neoplasm progression [Unknown]
  - Neoplasm [Not Recovered/Not Resolved]
  - Lower respiratory tract infection [Recovering/Resolving]
